FAERS Safety Report 15832759 (Version 3)
Quarter: 2019Q1

REPORT INFORMATION
  Report Type: Spontaneous
  Country: US (occurrence: US)
  Receive Date: 20190116
  Receipt Date: 20190212
  Transmission Date: 20190417
  Serious: No
  Sender: FDA-Public Use
  Company Number: US-TEVA-2018-US-990678

PATIENT
  Age: 3 Year
  Sex: Female
  Weight: 23 kg

DRUGS (4)
  1. QVAR REDIHALER [Suspect]
     Active Substance: BECLOMETHASONE DIPROPIONATE
     Indication: ASTHMA
     Dosage: 1 PUFF BID
     Route: 065
     Dates: start: 201811
  2. FISH OIL [Concomitant]
     Active Substance: FISH OIL
     Route: 065
  3. QVAR [Suspect]
     Active Substance: BECLOMETHASONE DIPROPIONATE
     Indication: ASTHMA
     Route: 065
  4. ALBUTEROL NEBULIZER/UNSPECIFIED ALBUTEROL HFA [Concomitant]
     Indication: ASTHMA
     Route: 065

REACTIONS (6)
  - Wrong technique in product usage process [Unknown]
  - Drug ineffective [Unknown]
  - Product use issue [Unknown]
  - Product substitution issue [Unknown]
  - Asthma [Not Recovered/Not Resolved]
  - Wheezing [Not Recovered/Not Resolved]

NARRATIVE: CASE EVENT DATE: 201811
